FAERS Safety Report 6725117-8 (Version None)
Quarter: 2010Q2

REPORT INFORMATION
  Report Type: 
  Country: None (occurrence: None)
  Receive Date: 20100514
  Receipt Date: 20100430
  Transmission Date: 20101027
  Serious: Yes (Hospitalization, Other)
  Sender: FDA-Public Use
  Company Number: US-RANBAXY-2010US-33505

PATIENT

DRUGS (6)
  1. CARBAMAZEPINE [Suspect]
     Indication: COMPLEX PARTIAL SEIZURES
     Dosage: 1600 MG/DAY
     Route: 065
  2. ACETAMINOPHEN [Suspect]
     Indication: BACK PAIN
     Dosage: 2000 MG/DAY
     Route: 065
  3. ACETAMINOPHEN [Suspect]
     Dosage: 2500 MG/DAY
     Route: 065
  4. CLOBAZAM [Suspect]
     Indication: DRUG USE FOR UNKNOWN INDICATION
     Route: 065
  5. MESALAZINE [Suspect]
     Indication: CROHN'S DISEASE
  6. PARACETAMOL+METHOCARBAMOL [Suspect]
     Indication: ANALGESIC THERAPY
     Route: 065

REACTIONS (3)
  - ACUTE HEPATIC FAILURE [None]
  - DRUG INTERACTION [None]
  - RENAL FAILURE ACUTE [None]
